FAERS Safety Report 20949421 (Version 2)
Quarter: 2022Q4

REPORT INFORMATION
  Report Type: Report from Study
  Country: FR (occurrence: FR)
  Receive Date: 20220613
  Receipt Date: 20221125
  Transmission Date: 20230112
  Serious: Yes (Other)
  Sender: FDA-Public Use
  Company Number: FR-TAKEDA-2022TUS038279

PATIENT
  Age: 54 Year
  Sex: Male

DRUGS (36)
  1. TEDUGLUTIDE [Suspect]
     Active Substance: TEDUGLUTIDE
     Indication: Short-bowel syndrome
     Dosage: 4.2 MILLIGRAM, QD
     Route: 042
     Dates: start: 20170411, end: 201808
  2. TEDUGLUTIDE [Suspect]
     Active Substance: TEDUGLUTIDE
     Indication: Short-bowel syndrome
     Dosage: 4.2 MILLIGRAM, QD
     Route: 042
     Dates: start: 20170411, end: 201808
  3. TEDUGLUTIDE [Suspect]
     Active Substance: TEDUGLUTIDE
     Indication: Short-bowel syndrome
     Dosage: 4.2 MILLIGRAM, QD
     Route: 042
     Dates: start: 20170411, end: 201808
  4. TEDUGLUTIDE [Suspect]
     Active Substance: TEDUGLUTIDE
     Indication: Short-bowel syndrome
     Dosage: 4.2 MILLIGRAM, QD
     Route: 042
     Dates: start: 20170411, end: 201808
  5. ZINC [Concomitant]
     Active Substance: ZINC
     Indication: Mineral supplementation
     Dosage: 30 MILLIGRAM, QD
     Route: 048
     Dates: start: 202006, end: 202007
  6. POTASSIUM CHLORIDE [Concomitant]
     Active Substance: POTASSIUM CHLORIDE
     Indication: Hypokalaemia
     Dosage: 9 DOSAGE FORM, QD
     Route: 048
     Dates: start: 202006
  7. POTASSIUM CHLORIDE [Concomitant]
     Active Substance: POTASSIUM CHLORIDE
     Dosage: 2 DOSAGE FORM, TID
     Route: 048
     Dates: start: 201705
  8. POTASSIUM CHLORIDE [Concomitant]
     Active Substance: POTASSIUM CHLORIDE
     Dosage: 2 DOSAGE FORM, BID
     Route: 048
     Dates: start: 2019, end: 2020
  9. FOLIC ACID [Concomitant]
     Active Substance: FOLIC ACID
     Indication: Vitamin supplementation
     Dosage: 5 MILLIGRAM, BID
     Route: 048
     Dates: start: 201912, end: 202001
  10. VITAMIN B12 [Concomitant]
     Active Substance: CYANOCOBALAMIN
     Indication: Vitamin supplementation
     Dosage: 1 MILLIGRAM
     Route: 030
     Dates: start: 201212
  11. VITAMIN B12 [Concomitant]
     Active Substance: CYANOCOBALAMIN
     Dosage: 1 MILLIGRAM
     Route: 030
     Dates: start: 201704
  12. PANCRELIPASE [Concomitant]
     Active Substance: PANCRELIPASE
     Indication: Product used for unknown indication
     Dosage: 12500 INTERNATIONAL UNIT, TID
     Route: 048
     Dates: start: 201605, end: 201704
  13. PANCRELIPASE [Concomitant]
     Active Substance: PANCRELIPASE
     Dosage: 40000 INTERNATIONAL UNIT, TID
     Route: 048
     Dates: start: 201701, end: 201704
  14. QUESTRAN [Concomitant]
     Active Substance: CHOLESTYRAMINE
     Dosage: 1 DOSAGE FORM, QID
     Route: 048
     Dates: start: 201605
  15. QUESTRAN [Concomitant]
     Active Substance: CHOLESTYRAMINE
     Dosage: 4 GRAM, BID
     Route: 048
     Dates: start: 2019
  16. EUPANTOL [Concomitant]
     Active Substance: PANTOPRAZOLE SODIUM
     Dosage: 40 MILLIGRAM, QD
     Route: 048
     Dates: start: 201605, end: 2017
  17. IMODIUM [Concomitant]
     Active Substance: LOPERAMIDE HYDROCHLORIDE
     Indication: Short-bowel syndrome
     Dosage: 6 DOSAGE FORM, QD
     Route: 048
     Dates: start: 201605
  18. RACECADOTRIL [Concomitant]
     Active Substance: RACECADOTRIL
     Dosage: 100 MILLIGRAM, BID
     Route: 048
     Dates: start: 201605, end: 201704
  19. CHOLECALCIFEROL [Concomitant]
     Active Substance: CHOLECALCIFEROL
     Indication: Vitamin supplementation
     Dosage: 100000.0 INTERNATIONAL UNIT, 1/WEEK
     Route: 048
     Dates: start: 201605
  20. CHOLECALCIFEROL [Concomitant]
     Active Substance: CHOLECALCIFEROL
     Dosage: 100000.0 INTERNATIONAL UNIT, 1/WEEK
     Route: 048
     Dates: start: 201912
  21. AZATHIOPRINE SODIUM [Concomitant]
     Active Substance: AZATHIOPRINE SODIUM
     Dosage: 100 MILLIGRAM, QD
     Route: 048
     Dates: start: 201605, end: 2018
  22. PHLOROGLUCINOL [Concomitant]
     Active Substance: PHLOROGLUCINOL
     Dosage: 80 MILLIGRAM, BID
     Route: 048
     Dates: start: 201704
  23. CALCIUM PHOSPHATE, DIBASIC, ANHYDROUS\MAGNESIUM GLYCEROPHOSPHATE\PHOSP [Concomitant]
     Active Substance: CALCIUM PHOSPHATE, DIBASIC, ANHYDROUS\MAGNESIUM GLYCEROPHOSPHATE\PHOSPHORIC ACID\SODIUM PHOSPHATE, D
     Indication: Mineral supplementation
     Dosage: 50 GTT DROPS, QD
     Route: 048
  24. POTASSIUM [Concomitant]
     Active Substance: POTASSIUM
     Indication: Prophylaxis
     Dosage: 2 DOSAGE FORM, QD
     Route: 048
     Dates: start: 201803
  25. NORFLOXACIN [Concomitant]
     Active Substance: NORFLOXACIN
     Indication: Prophylaxis
     Dosage: 1 DOSAGE FORM
     Route: 048
     Dates: start: 201807
  26. METRONIDAZOLE [Concomitant]
     Active Substance: METRONIDAZOLE
     Indication: Prophylaxis
     Dosage: 250 MILLIGRAM
     Route: 048
     Dates: start: 201807
  27. TRAMADOL [Concomitant]
     Active Substance: TRAMADOL
     Indication: Lower limb fracture
     Dosage: 100 MILLIGRAM, BID
     Route: 048
     Dates: start: 20190110, end: 20190113
  28. TRAMADOL [Concomitant]
     Active Substance: TRAMADOL
     Dosage: 50 MILLIGRAM, QD
     Route: 048
     Dates: start: 20190110, end: 20190116
  29. ACETAMINOPHEN [Concomitant]
     Active Substance: ACETAMINOPHEN
     Indication: Lower limb fracture
     Dosage: 1000 MILLIGRAM, TID
     Route: 048
     Dates: start: 20190110, end: 20190210
  30. KETOPROFEN [Concomitant]
     Active Substance: KETOPROFEN
     Indication: Lower limb fracture
     Dosage: 100 MILLIGRAM, QD
     Route: 048
     Dates: start: 20190110
  31. INIPOMP [Concomitant]
     Active Substance: PANTOPRAZOLE SODIUM
     Indication: Gastrooesophageal reflux prophylaxis
     Dosage: 20 MILLIGRAM, QD
     Route: 048
     Dates: start: 20190110, end: 20190120
  32. LOVENOX [Concomitant]
     Active Substance: ENOXAPARIN SODIUM
     Indication: Lower limb fracture
     Dosage: 0.40 MILLILITER, QD
     Route: 058
     Dates: start: 20190110, end: 20190210
  33. RACECADOTRIL [Concomitant]
     Active Substance: RACECADOTRIL
     Indication: Short-bowel syndrome
     Dosage: 1 DOSAGE FORM, BID
     Route: 048
     Dates: start: 2019
  34. VITAMIN C [Concomitant]
     Active Substance: ASCORBIC ACID
     Indication: Vitamin supplementation
     Dosage: 500 MILLIGRAM, QD
     Route: 048
     Dates: start: 201912
  35. VITAMIN K [Concomitant]
     Active Substance: PHYTONADIONE
     Indication: Vitamin supplementation
     Dosage: 10 MILLIGRAM
     Route: 048
     Dates: start: 201912
  36. LEVOCARNITINE [Concomitant]
     Active Substance: LEVOCARNITINE
     Indication: Vitamin supplementation
     Dosage: 2 GRAM, BID
     Route: 048
     Dates: start: 201912, end: 202001

REACTIONS (2)
  - Hypokalaemia [Not Recovered/Not Resolved]
  - Diarrhoea [Not Recovered/Not Resolved]

NARRATIVE: CASE EVENT DATE: 20210501
